FAERS Safety Report 24889702 (Version 2)
Quarter: 2025Q1

REPORT INFORMATION
  Report Type: Spontaneous
  Country: US (occurrence: US)
  Receive Date: 20250127
  Receipt Date: 20250214
  Transmission Date: 20250408
  Serious: Yes (Other)
  Sender: BAYER HEALTHCARE PHARMACEUTICALS INC.
  Company Number: US-BAYER-2025A010831

PATIENT
  Age: 55 Year
  Sex: Female

DRUGS (8)
  1. MIRENA [Suspect]
     Active Substance: LEVONORGESTREL
     Indication: Heavy menstrual bleeding
     Dosage: 20?G/DAY
     Route: 015
     Dates: start: 20191212
  2. AMLODIPINE [Concomitant]
     Active Substance: AMLODIPINE BESYLATE
     Dosage: 1 DF, QD
     Route: 048
     Dates: start: 20241119, end: 20250128
  3. ATORVASTATIN CALCIUM [Concomitant]
     Active Substance: ATORVASTATIN CALCIUM
     Dosage: 20 MG, QD
     Route: 048
     Dates: start: 20240130, end: 20250131
  4. AZELASTINE [Concomitant]
     Active Substance: AZELASTINE
     Route: 045
     Dates: start: 20240130
  5. CATAPRES [Concomitant]
     Active Substance: CLONIDINE HYDROCHLORIDE
     Dosage: 8 DF, BID
     Route: 048
     Dates: start: 20230110, end: 20241223
  6. LOTRISONE [Concomitant]
     Active Substance: BETAMETHASONE DIPROPIONATE\CLOTRIMAZOLE
     Route: 061
     Dates: start: 20230328
  7. ZUMANDIMINE [Concomitant]
     Active Substance: DROSPIRENONE\ETHINYL ESTRADIOL
     Dosage: 1 DF, QD
     Route: 048
     Dates: start: 20240110, end: 20250128
  8. ADVAIR HFA [Concomitant]
     Active Substance: FLUTICASONE PROPIONATE\SALMETEROL XINAFOATE
     Route: 045
     Dates: start: 20241114

REACTIONS (4)
  - Embedded device [Not Recovered/Not Resolved]
  - Complication of device removal [None]
  - Menstruation irregular [Not Recovered/Not Resolved]
  - Hypertension [Recovered/Resolved]

NARRATIVE: CASE EVENT DATE: 20241203
